FAERS Safety Report 4440895-9 (Version None)
Quarter: 2004Q3

REPORT INFORMATION
  Report Type: 
  Country: None (occurrence: None)
  Receive Date: 20040728
  Receipt Date: 20040423
  Transmission Date: 20050211
  Serious: No
  Sender: FDA-Public Use
  Company Number: USA040465818

PATIENT
  Age: 16 Year
  Sex: Male

DRUGS (2)
  1. STRATTERA [Suspect]
     Indication: ATTENTION DEFICIT/HYPERACTIVITY DISORDER
     Dosage: 40 MG DAY
     Dates: start: 20040421
  2. STRATTERA [Suspect]
     Indication: IMPULSIVE BEHAVIOUR
     Dosage: 40 MG DAY
     Dates: start: 20040421

REACTIONS (2)
  - DIZZINESS [None]
  - FEELING ABNORMAL [None]
